FAERS Safety Report 8967761 (Version 1)
Quarter: 2012Q4

REPORT INFORMATION
  Report Type: Spontaneous
  Country: FR (occurrence: None)
  Receive Date: 20121210
  Receipt Date: 20121210
  Transmission Date: 20130627
  Serious: Yes (Hospitalization)
  Sender: FDA-Public Use
  Company Number: 1509554

PATIENT
  Age: 43 Year
  Sex: Female

DRUGS (3)
  1. PAMIDRONIC ACID [Suspect]
     Indication: HYPERCALCEMIA
     Dosage: 3 mg/ml, 1 injection, intravenous
     Dates: start: 20121003, end: 20121011
  2. VANCOMYCINE [Suspect]
     Route: 042
     Dates: start: 20120915, end: 20121011
  3. PIPERACILLIN + TAZOBACTAM [Suspect]
     Route: 042
     Dates: start: 20120915, end: 20120925

REACTIONS (2)
  - Agranulocytosis [None]
  - White blood cell count decreased [None]
